FAERS Safety Report 19844294 (Version 1)
Quarter: 2021Q3

REPORT INFORMATION
  Report Type: Spontaneous
  Country: CN (occurrence: CN)
  Receive Date: 20210916
  Receipt Date: 20210916
  Transmission Date: 20211014
  Serious: Yes (Hospitalization)
  Sender: FDA-Public Use
  Company Number: CN-ASTRAZENECA-2021A720596

PATIENT
  Age: 14569 Day
  Sex: Male
  Weight: 84.5 kg

DRUGS (1)
  1. DAPAGLIFLOZIN. [Suspect]
     Active Substance: DAPAGLIFLOZIN
     Indication: BLOOD GLUCOSE DECREASED
     Route: 048
     Dates: start: 20210823, end: 20210828

REACTIONS (4)
  - Nausea [Recovering/Resolving]
  - Urine output decreased [Unknown]
  - Vomiting [Recovering/Resolving]
  - Mental impairment [Recovering/Resolving]

NARRATIVE: CASE EVENT DATE: 20210828
